FAERS Safety Report 4970402-3 (Version None)
Quarter: 2006Q2

REPORT INFORMATION
  Report Type: 
  Country: None (occurrence: None)
  Receive Date: 20060412
  Receipt Date: 20060313
  Transmission Date: 20061013
  Serious: Yes (Other)
  Sender: FDA-Public Use
  Company Number: NL-GLAXOSMITHKLINE-B0416386A

PATIENT
  Age: 31 Year
  Sex: Male
  Weight: 93 kg

DRUGS (3)
  1. SALMETEROL XINAFOATE [Suspect]
     Indication: ASTHMA
     Dosage: 50MCG TWICE PER DAY
     Route: 055
     Dates: start: 19990101
  2. SALBUTAMOL SULPHATE [Suspect]
     Dosage: 1PUFF SEE DOSAGE TEXT
     Route: 055
     Dates: start: 19680101
  3. FLUTICASONE PROPIONATE [Suspect]
     Indication: ASTHMA
     Dosage: 500MCG TWICE PER DAY
     Route: 055
     Dates: start: 19920101

REACTIONS (6)
  - ASTHMA [None]
  - CHEST DISCOMFORT [None]
  - COUGH [None]
  - DRUG INEFFECTIVE [None]
  - DYSPNOEA [None]
  - PRODUCTIVE COUGH [None]
